FAERS Safety Report 17522564 (Version 1)
Quarter: 2020Q1

REPORT INFORMATION
  Report Type: Spontaneous
  Country: FR (occurrence: FR)
  Receive Date: 20200311
  Receipt Date: 20200311
  Transmission Date: 20200409
  Serious: Yes (Hospitalization)
  Sender: FDA-Public Use
  Company Number: FR-AMGEN-FRASP2020037211

PATIENT
  Age: 72 Year
  Sex: Male

DRUGS (3)
  1. FLUOROURACILE ACCORD [Suspect]
     Active Substance: FLUOROURACIL
     Indication: COLORECTAL ADENOCARCINOMA
     Dosage: 1920 MILLIGRAM/SQ. METER (15 DAY INTERVAL)
     Route: 042
     Dates: start: 20191129
  2. OXALIPLATINE ACCORD [Suspect]
     Active Substance: OXALIPLATIN
     Indication: COLORECTAL ADENOCARCINOMA
     Dosage: 68 MILLIGRAM/SQ. METER (15 DAY INTERVAL)
     Route: 042
     Dates: start: 20191129
  3. VECTIBIX [Suspect]
     Active Substance: PANITUMUMAB
     Indication: COLORECTAL ADENOCARCINOMA
     Dosage: 6 MILLIGRAM/KILOGRAM (15 DAY INTERVAL)
     Route: 042
     Dates: start: 20191227

REACTIONS (1)
  - Anaemia [Recovered/Resolved]

NARRATIVE: CASE EVENT DATE: 20200115
